FAERS Safety Report 6152054-2 (Version None)
Quarter: 2009Q2

REPORT INFORMATION
  Report Type: 
  Country: None (occurrence: None)
  Receive Date: 20090410
  Receipt Date: 20090406
  Transmission Date: 20091009
  Serious: Yes (Disabling, Other)
  Sender: FDA-Public Use
  Company Number: US-GILEAD-2008-0019462

PATIENT
  Sex: Female
  Weight: 54.934 kg

DRUGS (15)
  1. LETAIRIS [Suspect]
     Indication: PULMONARY ARTERIAL HYPERTENSION
     Route: 048
     Dates: start: 20081014
  2. LETAIRIS [Suspect]
     Route: 048
  3. LEXAPRO [Concomitant]
  4. LIPITOR [Concomitant]
  5. PLAVIX [Concomitant]
  6. AVAPRO [Concomitant]
  7. KLOR-CON [Concomitant]
  8. TORSEMIDE [Concomitant]
  9. LEVOTHYROXINE SODIUM [Concomitant]
  10. REVATIO [Concomitant]
  11. VITAMIN A [Concomitant]
  12. VITAMIN E [Concomitant]
  13. VITAMIN B COMPLEX CAP [Concomitant]
  14. FOLIC ACID [Concomitant]
  15. ASPIRIN [Concomitant]

REACTIONS (2)
  - ACUTE PRERENAL FAILURE [None]
  - DIZZINESS [None]
